FAERS Safety Report 8785593 (Version 1)
Quarter: 2012Q4

REPORT INFORMATION
  Report Type: Spontaneous
  Country: US (occurrence: None)
  Receive Date: 20120904
  Receipt Date: 20120904
  Transmission Date: 20130627
  Serious: Yes (Hospitalization)
  Sender: FDA-Public Use
  Company Number: 100410-000021

PATIENT
  Age: 25 Year
  Sex: Female

DRUGS (3)
  1. PROACTIV RENEWING CLEANSER [Suspect]
     Indication: ACNE
     Dosage: Once daily dermal
     Dates: start: 20100329
  2. PROACTIV REPAIRING TREATMENT [Suspect]
     Dosage: Once daily dermal
     Dates: start: 20100329
  3. PROACTIV SPF 15 MOISTURIZER [Suspect]
     Dosage: Once daily dermal
     Dates: start: 20100329

REACTIONS (2)
  - Urticaria [None]
  - Pruritus [None]
